FAERS Safety Report 24542184 (Version 2)
Quarter: 2024Q4

REPORT INFORMATION
  Report Type: Report from Study
  Country: NL (occurrence: NL)
  Receive Date: 20241023
  Receipt Date: 20241030
  Transmission Date: 20250114
  Serious: Yes (Life-Threatening, Hospitalization, Other)
  Sender: VERITY PHARMACEUTICALS INC.
  Company Number: NL-VER-202400068

PATIENT
  Age: 78 Year
  Sex: Male

DRUGS (7)
  1. TRIPTORELIN PAMOATE [Suspect]
     Active Substance: TRIPTORELIN PAMOATE
     Indication: Prostate cancer
     Dosage: 22.5MG SOLV 2ML (1ST), 1.00 X PER 6 MONTHS, SUSPENSION FOR INJECTION.
     Route: 030
     Dates: start: 20210409
  2. TRIPTORELIN PAMOATE [Suspect]
     Active Substance: TRIPTORELIN PAMOATE
     Indication: Prostate cancer
     Dosage: 22.5MG SOLV 2ML (1ST), 1.00 X PER 6 MONTHS, SUSPENSION FOR INJECTION.
     Route: 030
     Dates: start: 20240412
  3. TRIPTORELIN PAMOATE [Suspect]
     Active Substance: TRIPTORELIN PAMOATE
     Indication: Prostate cancer
     Dosage: START DATE: 11-OCT-24??22.5MG SOLV 2ML (1ST), 1.00 X PER 6 MONTHS, SUSPENSION FOR INJECTION.
     Route: 030
  4. PRAVASTATIN [Concomitant]
     Active Substance: PRAVASTATIN
     Indication: Product used for unknown indication
     Dosage: (40 MILLIGRAM(S), IN 1 DAY)
     Route: 065
  5. OMEPRAZOLE [Concomitant]
     Active Substance: OMEPRAZOLE
     Indication: Product used for unknown indication
     Dosage: (20 MILLIGRAM(S), IN 1 DAY)
     Route: 065
  6. LOSARTAN [Concomitant]
     Active Substance: LOSARTAN
     Indication: Product used for unknown indication
     Dosage: 1X DD X 100/25 MG
     Route: 065
  7. FELODIPINE [Concomitant]
     Active Substance: FELODIPINE
     Indication: Product used for unknown indication
     Dosage: (10 MILLIGRAM(S), IN 1 DAY)
     Route: 065

REACTIONS (1)
  - Cardiac arrest [Recovered/Resolved]

NARRATIVE: CASE EVENT DATE: 20240914
